FAERS Safety Report 16668398 (Version 4)
Quarter: 2019Q3

REPORT INFORMATION
  Report Type: Spontaneous
  Country: US (occurrence: CN)
  Receive Date: 20190805
  Receipt Date: 20190828
  Transmission Date: 20191004
  Serious: Yes (Life-Threatening)
  Sender: FDA-Public Use
  Company Number: US-SUNOVION-2019SUN003212

PATIENT
  Age: 61 Year
  Sex: Male

DRUGS (1)
  1. INDACATEROL AND GLYCOPYRROLATE [Suspect]
     Active Substance: GLYCOPYRROLATE\INDACATEROL MALEATE
     Indication: CHRONIC OBSTRUCTIVE PULMONARY DISEASE
     Dosage: 1 DF, ONCE/SINGLE
     Route: 048
     Dates: start: 20190730, end: 20190731

REACTIONS (7)
  - Respiratory rate increased [Recovered/Resolved]
  - Fatigue [Unknown]
  - Tachycardia [Recovered/Resolved]
  - Palpitations [Unknown]
  - Chest discomfort [Recovered/Resolved]
  - Chest pain [Unknown]
  - Dyspnoea [Unknown]

NARRATIVE: CASE EVENT DATE: 20190730
